FAERS Safety Report 17464833 (Version 1)
Quarter: 2020Q1

REPORT INFORMATION
  Report Type: Spontaneous
  Country: US (occurrence: US)
  Receive Date: 20200226
  Receipt Date: 20200226
  Transmission Date: 20200409
  Serious: No
  Sender: FDA-Public Use
  Company Number: US-ROCHE-2372151

PATIENT

DRUGS (1)
  1. ALECENSA [Suspect]
     Active Substance: ALECTINIB HYDROCHLORIDE
     Indication: PRODUCT USED FOR UNKNOWN INDICATION
     Dosage: 12 PILLS DAILY, WHEN THE PRESCRIBED AMOUNT IS 8 PILLS DAILY -- ALECENSA IS NOT WEIGHT-BASED
     Route: 065

REACTIONS (5)
  - Muscle fatigue [Unknown]
  - Constipation [Unknown]
  - Off label use [Unknown]
  - Abdominal distension [Unknown]
  - Intentional product misuse [Unknown]
